FAERS Safety Report 8795096 (Version 1)
Quarter: 2012Q4

REPORT INFORMATION
  Report Type: Report from Study
  Country: CA (occurrence: CA)
  Receive Date: 20120918
  Receipt Date: 20120918
  Transmission Date: 20130627
  Serious: Yes (Death)
  Sender: FDA-Public Use
  Company Number: CA-ROCHE-1127383

PATIENT
  Sex: Female
  Weight: 50.85 kg

DRUGS (6)
  1. AVASTIN [Suspect]
     Indication: GLIOBLASTOMA
     Route: 042
     Dates: start: 20110527
  2. AVASTIN [Suspect]
     Route: 065
     Dates: start: 20120110
  3. KEPPRA [Concomitant]
  4. TAMOXIFEN [Concomitant]
  5. CELEBREX [Concomitant]
  6. DEXAMETHASONE [Concomitant]

REACTIONS (1)
  - Death [Fatal]
